FAERS Safety Report 11432583 (Version 2)
Quarter: 2015Q4

REPORT INFORMATION
  Report Type: Spontaneous
  Country: US (occurrence: US)
  Receive Date: 20150828
  Receipt Date: 20151116
  Transmission Date: 20160304
  Serious: No
  Sender: FDA-Public Use
  Company Number: US-PFIZER INC-2015283817

PATIENT
  Age: 72 Year
  Sex: Male
  Weight: 117 kg

DRUGS (3)
  1. GABAPENTIN. [Suspect]
     Active Substance: GABAPENTIN
     Indication: PAIN
  2. GABAPENTIN. [Suspect]
     Active Substance: GABAPENTIN
     Indication: GUILLAIN-BARRE SYNDROME
     Dosage: 300 MG, 4X/DAY
     Dates: start: 2004
  3. GABAPENTIN. [Suspect]
     Active Substance: GABAPENTIN
     Indication: AUTONOMIC NEUROPATHY

REACTIONS (1)
  - Drug ineffective [Unknown]
